FAERS Safety Report 16215039 (Version 1)
Quarter: 2019Q2

REPORT INFORMATION
  Report Type: Spontaneous
  Country: US (occurrence: US)
  Receive Date: 20190418
  Receipt Date: 20190418
  Transmission Date: 20190711
  Serious: Yes (Hospitalization)
  Sender: FDA-Public Use
  Company Number: None

PATIENT
  Sex: Female
  Weight: 64.4 kg

DRUGS (5)
  1. AFINITOR [Suspect]
     Active Substance: EVEROLIMUS
     Indication: BREAST CANCER
     Route: 048
     Dates: start: 20190216, end: 20190418
  2. MULTI VITAMIN [Concomitant]
     Active Substance: VITAMINS
  3. XGEVA [Concomitant]
     Active Substance: DENOSUMAB
  4. CALCIUM [Concomitant]
     Active Substance: CALCIUM
  5. LETROZOLE. [Concomitant]
     Active Substance: LETROZOLE

REACTIONS (2)
  - Pancreatitis [None]
  - Therapy cessation [None]
